FAERS Safety Report 12906124 (Version 1)
Quarter: 2016Q4

REPORT INFORMATION
  Report Type: Spontaneous
  Country: IN (occurrence: IN)
  Receive Date: 20161103
  Receipt Date: 20161103
  Transmission Date: 20170207
  Serious: Yes (Hospitalization, Other)
  Sender: FDA-Public Use
  Company Number: IN-UCBSA-2016041538

PATIENT
  Age: 20 Year
  Sex: Female

DRUGS (3)
  1. TOPIRAMATE. [Suspect]
     Active Substance: TOPIRAMATE
     Indication: MIGRAINE PROPHYLAXIS
     Dosage: 25 MG, 2X/DAY (BID)
  2. LEVETIRACETAM. [Suspect]
     Active Substance: LEVETIRACETAM
     Indication: OFF LABEL USE
  3. LEVETIRACETAM. [Suspect]
     Active Substance: LEVETIRACETAM
     Indication: MIGRAINE PROPHYLAXIS
     Dosage: 250 MG, ONCE DAILY (QD)

REACTIONS (5)
  - Vomiting [Unknown]
  - Headache [Unknown]
  - Myopia [Recovering/Resolving]
  - Angle closure glaucoma [Recovering/Resolving]
  - Off label use [Unknown]
